FAERS Safety Report 7235413-6 (Version None)
Quarter: 2011Q1

REPORT INFORMATION
  Report Type: 
  Country: None (occurrence: None)
  Receive Date: 20110120
  Receipt Date: 20110111
  Transmission Date: 20110831
  Serious: Yes (Hospitalization, Other)
  Sender: FDA-Public Use
  Company Number: CA-JNJFOC-20110103167

PATIENT
  Sex: Male
  Weight: 96 kg

DRUGS (7)
  1. REMICADE [Suspect]
     Indication: COLITIS ULCERATIVE
     Route: 042
  2. REMICADE [Suspect]
     Route: 042
  3. METFORMIN [Concomitant]
  4. GLYBURIDE [Concomitant]
  5. REMICADE [Suspect]
     Route: 042
  6. PERINDOPRIL ERBUMINE [Concomitant]
  7. REMICADE [Suspect]
     Route: 042

REACTIONS (3)
  - BLOOD PRESSURE INCREASED [None]
  - INFUSION RELATED REACTION [None]
  - HEART RATE INCREASED [None]
